FAERS Safety Report 6556805-4 (Version None)
Quarter: 2010Q1

REPORT INFORMATION
  Report Type: 
  Country: None (occurrence: None)
  Receive Date: 20100128
  Receipt Date: 20100115
  Transmission Date: 20100710
  Serious: Yes (Other)
  Sender: FDA-Public Use
  Company Number: PHEH2010US00854

PATIENT
  Sex: Female

DRUGS (16)
  1. RECLAST [Suspect]
     Indication: OSTEOPOROSIS
     Dosage: UNK
     Dates: start: 20090105
  2. GAMMAGARD [Interacting]
  3. SYNTHROID [Concomitant]
     Dosage: 0.25 MG, QD
  4. HYDROCHLOROTHIAZIDE [Concomitant]
     Dosage: UNK
  5. CITRACAL [Concomitant]
     Dosage: 2 TABLETS DAILY
  6. ASPIRIN [Concomitant]
     Dosage: 81 MG, UNK
  7. CALCIUM [Concomitant]
     Dosage: 500 MG, UNK
  8. VITAMIN D [Concomitant]
     Dosage: 1000 IU, UNK
  9. COUMADIN [Concomitant]
     Dosage: 5 MG, QD
  10. CARDIZEM LA /OLD FORM/ [Concomitant]
     Dosage: 300 MG, QD
  11. PRAVASTATIN [Concomitant]
     Dosage: 40 MG, QD
  12. FLORICAL [Concomitant]
     Dosage: ONE DAILY
  13. ADVAIR [Concomitant]
     Dosage: 250 MG INHALER TWICE A DAY
  14. ALPHAGAN [Concomitant]
     Dosage: .15%
  15. TIMOLOL MALEATE [Concomitant]
     Dosage: 5% SOLUTION
  16. CENTRUM SILVER [Concomitant]

REACTIONS (1)
  - LUNG INFECTION [None]
